FAERS Safety Report 4370862-5 (Version None)
Quarter: 2004Q2

REPORT INFORMATION
  Report Type: 
  Country: None (occurrence: None)
  Receive Date: 20040601
  Receipt Date: 20040514
  Transmission Date: 20050107
  Serious: Yes (Disabling)
  Sender: FDA-Public Use
  Company Number: SP00279

PATIENT
  Age: 64 Year
  Sex: Male

DRUGS (5)
  1. COLAZAL [Suspect]
     Indication: COLITIS ULCERATIVE
     Dosage: 750MG TID ORAL
     Route: 048
     Dates: start: 20010101, end: 20040428
  2. MESALAMINE [Suspect]
     Indication: COLITIS ULCERATIVE
     Dosage: LG/EVERY NIGHT, RECTAL
     Route: 054
     Dates: start: 20010101
  3. CO-PHENOTROPE [Concomitant]
  4. PREDNISOLONE [Concomitant]
  5. ATORVASTATIN CALCIUM [Concomitant]

REACTIONS (1)
  - ALVEOLITIS FIBROSING [None]
